FAERS Safety Report 25089534 (Version 1)
Quarter: 2025Q1

REPORT INFORMATION
  Report Type: Spontaneous
  Country: US (occurrence: US)
  Receive Date: 20250318
  Receipt Date: 20250318
  Transmission Date: 20250408
  Serious: No
  Sender: EYWA PHARMA INC.
  Company Number: US-Eywa Pharma Inc.-2173133

PATIENT

DRUGS (1)
  1. BACLOFEN [Suspect]
     Active Substance: BACLOFEN
     Indication: Hiccups

REACTIONS (1)
  - Drug ineffective for unapproved indication [Unknown]
